FAERS Safety Report 9500506 (Version 1)
Quarter: 2013Q1

REPORT INFORMATION
  Report Type: Spontaneous
  Country: US (occurrence: None)
  Receive Date: 20130107
  Receipt Date: 20130107
  Transmission Date: 20140127
  Serious: Yes (Other)
  Sender: FDA-Public Use
  Company Number: PHEH2012US019629

PATIENT
  Age: 71 Year
  Sex: Female
  Weight: 56.7 kg

DRUGS (9)
  1. GILENYA (FINGOLIMOD) CAPSULE, 0.5MG [Suspect]
     Indication: MULTIPLE SCLEROSIS
     Route: 048
     Dates: start: 20121004, end: 20121004
  2. AMBIEN (ZOLPIDEM TARTRATE) [Concomitant]
  3. PRILOSCE (OMEPRAZOLE) [Concomitant]
  4. XANAX (ALPRAZOLAM) [Concomitant]
  5. SYNTHROID (LEVOTHYROXINE SODIUM) [Concomitant]
  6. LORAZEPAM (LORAZEPAM) [Concomitant]
  7. B 12 (CYANOCOBALAMIN) [Concomitant]
  8. ADVIL (MEFENAMIC ACID) [Concomitant]
  9. BETASERON (ALBUMIN HUMAN, GLUCOSE, INTERFERON BETA) [Concomitant]

REACTIONS (6)
  - Atrioventricular block first degree [None]
  - Blood pressure decreased [None]
  - Blood pressure increased [None]
  - Heart rate irregular [None]
  - Bradycardia [None]
  - Fatigue [None]
